FAERS Safety Report 13417591 (Version 2)
Quarter: 2017Q2

REPORT INFORMATION
  Report Type: Report from Study
  Country: CO (occurrence: CO)
  Receive Date: 20170407
  Receipt Date: 20170411
  Transmission Date: 20170830
  Serious: Yes (Other)
  Sender: FDA-Public Use
  Company Number: CO-ACTELION-A-US2017-152267

PATIENT
  Age: 68 Year
  Sex: Male

DRUGS (2)
  1. VENTAVIS [Suspect]
     Active Substance: ILOPROST
     Indication: PULMONARY ARTERIAL HYPERTENSION
     Dosage: 5 DF, 6ID
     Route: 055
     Dates: start: 20100924
  2. VENTAVIS [Suspect]
     Active Substance: ILOPROST
     Dosage: 5 DF, QID
     Route: 055

REACTIONS (2)
  - Product use issue [Unknown]
  - Hepatic cirrhosis [Not Recovered/Not Resolved]

NARRATIVE: CASE EVENT DATE: 20170327
